FAERS Safety Report 8551047-5 (Version None)
Quarter: 2012Q3

REPORT INFORMATION
  Report Type: 
  Country: None (occurrence: None)
  Receive Date: 20120730
  Receipt Date: 20120719
  Transmission Date: 20120928
  Serious: Yes (Other)
  Sender: FDA-Public Use
  Company Number: CN-BAXTER-2012BAX012317

PATIENT
  Sex: Female
  Weight: 47 kg

DRUGS (1)
  1. SODIUM CHLORIDE INJ [Suspect]
     Indication: MEDICATION DILUTION
     Route: 041
     Dates: start: 20100714, end: 20100718

REACTIONS (5)
  - CHEST DISCOMFORT [None]
  - CHILLS [None]
  - VOMITING [None]
  - PYREXIA [None]
  - DYSPNOEA [None]
